FAERS Safety Report 6769718-X (Version None)
Quarter: 2010Q2

REPORT INFORMATION
  Report Type: 
  Country: None (occurrence: None)
  Receive Date: 20100615
  Receipt Date: 20100610
  Transmission Date: 20101027
  Serious: Yes (Life-Threatening, Hospitalization)
  Sender: FDA-Public Use
  Company Number: MX-ROCHE-484261

PATIENT
  Sex: Female
  Weight: 59.2 kg

DRUGS (13)
  1. TOCILIZUMAB [Suspect]
     Indication: RHEUMATOID ARTHRITIS
     Route: 042
     Dates: start: 20060808, end: 20070123
  2. TOCILIZUMAB [Suspect]
     Route: 042
     Dates: start: 20070320
  3. TOCILIZUMAB [Suspect]
     Dosage: DRUG REPORTED: MRA 8 MG/KG + DMARD, DOSE: MRA 8 MG/KG,PATIENT  PREVIOUSLY ENROLLED IN WA18063.
     Route: 042
  4. INDOMETHACIN [Concomitant]
     Route: 065
     Dates: start: 20051129
  5. KETOROLAC TROMETHAMINE [Concomitant]
     Dates: start: 20051101
  6. FOLIC ACID [Concomitant]
     Dates: start: 20051101
  7. METHOTREXATE [Concomitant]
     Dosage: TAKEN WEEKLY.
     Dates: start: 20060110
  8. HYDROXYCHLOROQUINE [Concomitant]
     Dates: start: 20050905
  9. HYDROXYCHLOROQUINE [Concomitant]
     Dosage: TOTAL DAILY DOSE REPORTED: 12.5 MG QS.
     Dates: start: 20050921
  10. TYLEX FLU [Concomitant]
     Dates: start: 20070116, end: 20070120
  11. AUGMENTIN '125' [Concomitant]
     Dosage: TDD REPORTED AS 2 DOSE FORM.
     Dates: start: 20070116, end: 20070120
  12. HALOPERIDOL [Concomitant]
     Route: 042
     Dates: start: 20070119, end: 20070119
  13. KETOPROFEN [Concomitant]
     Route: 042
     Dates: start: 20070119, end: 20070119

REACTIONS (1)
  - RUPTURED CEREBRAL ANEURYSM [None]
